FAERS Safety Report 25547527 (Version 1)
Quarter: 2025Q3

REPORT INFORMATION
  Report Type: Spontaneous
  Country: US (occurrence: US)
  Receive Date: 20250714
  Receipt Date: 20250714
  Transmission Date: 20251021
  Serious: No
  Sender: ROCHE
  Company Number: US-ROCHE-10000328156

PATIENT

DRUGS (1)
  1. ACTEMRA ACTPEN [Suspect]
     Active Substance: TOCILIZUMAB
     Indication: Product used for unknown indication
     Route: 058

REACTIONS (3)
  - Product preparation error [Unknown]
  - Device defective [Unknown]
  - No adverse event [Unknown]
